FAERS Safety Report 9511807 (Version 1)
Quarter: 2013Q3

REPORT INFORMATION
  Report Type: Spontaneous
  Country: ES (occurrence: None)
  Receive Date: 20130906
  Receipt Date: 20130906
  Transmission Date: 20140515
  Serious: Yes (Life-Threatening)
  Sender: FDA-Public Use
  Company Number: FK201303878

PATIENT
  Age: 71 Year
  Sex: Female

DRUGS (5)
  1. ROCURONIUM [Suspect]
     Indication: ANAESTHESIA
  2. AMOXICILLIN CLAVULANIC ACID (SPEKTRAMOX) (SPEKTRAMOX) [Concomitant]
  3. FENTANYL (FENTANYL) (FENTANYL) [Concomitant]
  4. PROPOFOL (PROPOFOL) (PROPOFOL) [Concomitant]
  5. ONDANSETRON (ONDANSETRON) (ONDANSETRON) [Concomitant]

REACTIONS (7)
  - Cardio-respiratory arrest [None]
  - Anaphylactoid reaction [None]
  - Rash generalised [None]
  - Cough [None]
  - Oxygen saturation decreased [None]
  - Tachycardia [None]
  - Hypotension [None]
